FAERS Safety Report 7099240-5 (Version None)
Quarter: 2010Q4

REPORT INFORMATION
  Report Type: 
  Country: None (occurrence: None)
  Receive Date: 20101112
  Receipt Date: 20101102
  Transmission Date: 20110411
  Serious: Yes (Other)
  Sender: FDA-Public Use
  Company Number: US-JNJFOC-20101102933

PATIENT
  Sex: Female
  Weight: 81.65 kg

DRUGS (2)
  1. ORTHO EVRA [Suspect]
     Indication: MENSTRUATION IRREGULAR
     Route: 062
  2. ORTHO EVRA [Suspect]
     Indication: CONTRACEPTION
     Route: 062

REACTIONS (7)
  - APPLICATION SITE PRURITUS [None]
  - OFF LABEL USE [None]
  - PAPILLOMA VIRAL INFECTION [None]
  - PRECANCEROUS CELLS PRESENT [None]
  - PRODUCT ADHESION ISSUE [None]
  - SINUSITIS [None]
  - TONSILLECTOMY [None]
